FAERS Safety Report 5675106-X (Version None)
Quarter: 2008Q1

REPORT INFORMATION
  Report Type: 
  Country: None (occurrence: None)
  Receive Date: 20080320
  Receipt Date: 20080311
  Transmission Date: 20080703
  Serious: Yes (Other)
  Sender: FDA-Public Use
  Company Number: US-PFIZER INC-2008023840

PATIENT
  Age: 27 Year
  Sex: Male
  Weight: 127.72 kg

DRUGS (1)
  1. CHANTIX [Suspect]
     Indication: SMOKING CESSATION THERAPY

REACTIONS (4)
  - CONTUSION [None]
  - DIZZINESS [None]
  - FALL [None]
  - SYNCOPE [None]
